FAERS Safety Report 8305749-6 (Version None)
Quarter: 2012Q2

REPORT INFORMATION
  Report Type: 
  Country: None (occurrence: None)
  Receive Date: 20120423
  Receipt Date: 20120417
  Transmission Date: 20120825
  Serious: Yes (Other)
  Sender: FDA-Public Use
  Company Number: US-PFIZER INC-2012095938

PATIENT
  Sex: Female
  Weight: 68 kg

DRUGS (11)
  1. PLAVIX [Concomitant]
     Dosage: 75 MG, 2X/DAY
  2. NEURONTIN [Suspect]
     Indication: CARDIOVASCULAR DISORDER
     Dosage: 800 MG, DAILY
     Route: 048
     Dates: end: 20120415
  3. NEURONTIN [Suspect]
     Indication: LIMB DISCOMFORT
  4. LISINOPRIL [Concomitant]
     Dosage: 10 MG, 3X/DAY
  5. NEURONTIN [Suspect]
     Indication: ARTHRITIS
  6. ACCUPRIL [Concomitant]
     Dosage: 10 MG, 3X/DAY
  7. NEURONTIN [Suspect]
     Indication: GAIT DISTURBANCE
     Dosage: 500MG, AT BEDTIME
     Route: 048
     Dates: start: 20070101
  8. NEURONTIN [Suspect]
     Indication: GENERAL PHYSICAL HEALTH DETERIORATION
  9. LIPITOR [Concomitant]
     Indication: HYPERTENSION
     Dosage: 20 MG, 3X/DAY
  10. PLAVIX [Concomitant]
     Indication: THROMBOSIS
     Dosage: 75 MG, 1X/DAY
  11. PROZAC [Concomitant]
     Indication: DEPRESSION
     Dosage: 20 MG, 2X/DAY

REACTIONS (5)
  - OEDEMA PERIPHERAL [None]
  - BEDRIDDEN [None]
  - GAIT DISTURBANCE [None]
  - PAIN IN EXTREMITY [None]
  - ARTHRITIS [None]
